FAERS Safety Report 8401771-X (Version None)
Quarter: 2012Q2

REPORT INFORMATION
  Report Type: 
  Country: None (occurrence: None)
  Receive Date: 20120529
  Receipt Date: 20090312
  Transmission Date: 20120825
  Serious: Yes (Other)
  Sender: FDA-Public Use
  Company Number: 005938

PATIENT
  Sex: Male

DRUGS (2)
  1. PLETAL [Suspect]
     Dosage: ORAL
     Route: 048
  2. ASPIRIN [Concomitant]

REACTIONS (1)
  - RETINAL DETACHMENT [None]
